FAERS Safety Report 9575778 (Version 1)
Quarter: 2013Q4

REPORT INFORMATION
  Report Type: Spontaneous
  Country: US (occurrence: US)
  Receive Date: 20131001
  Receipt Date: 20131001
  Transmission Date: 20140711
  Serious: No
  Sender: FDA-Public Use
  Company Number: US-AMGEN-USASP2012059045

PATIENT
  Age: 15 Year
  Sex: Female

DRUGS (1)
  1. EPOGEN [Suspect]
     Indication: ANAEMIA
     Dosage: 8000 UNIT, 2 TIMES/WK
     Route: 058
     Dates: start: 201110

REACTIONS (5)
  - Blood iron decreased [Unknown]
  - White blood cell count decreased [Unknown]
  - Incorrect dose administered [Unknown]
  - Therapeutic response decreased [Unknown]
  - Injection site pain [Recovered/Resolved]
